FAERS Safety Report 16398547 (Version 1)
Quarter: 2019Q2

REPORT INFORMATION
  Report Type: Spontaneous
  Country: IT (occurrence: IT)
  Receive Date: 20190606
  Receipt Date: 20190606
  Transmission Date: 20190711
  Serious: Yes (Hospitalization, Other)
  Sender: FDA-Public Use
  Company Number: IT-MYLANLABS-2019M1053194

PATIENT
  Age: 15 Year
  Sex: Female

DRUGS (3)
  1. OLANZAPINE. [Suspect]
     Active Substance: OLANZAPINE
     Indication: PRODUCT USED FOR UNKNOWN INDICATION
     Dosage: 25 MILLIGRAM, TOTAL
     Route: 048
  2. TACHIPIRINA [Concomitant]
     Active Substance: ACETAMINOPHEN
     Dosage: 2 GRAM
     Route: 048
  3. BE TOTAL                           /01327201/ [Concomitant]
     Active Substance: VITAMINS
     Dosage: UNK

REACTIONS (4)
  - Extrapyramidal disorder [Unknown]
  - Sopor [Unknown]
  - Tachycardia [Unknown]
  - Drug abuse [Unknown]

NARRATIVE: CASE EVENT DATE: 20180724
